FAERS Safety Report 8869082 (Version 1)
Quarter: 2012Q4

REPORT INFORMATION
  Report Type: Spontaneous
  Country: US (occurrence: None)
  Receive Date: 20121022
  Receipt Date: 20121022
  Transmission Date: 20130627
  Serious: Yes (Death)
  Sender: FDA-Public Use
  Company Number: AUR-APL-2012-04424

PATIENT
  Age: 47 Year
  Sex: Male

DRUGS (2)
  1. PAROXETINE [Suspect]
     Indication: DRUG USE FOR UNKNOWN INDICATION
     Dosage: (60 mg, 1 D) , Unknown
     Route: 048
  2. ZAPONEX [Suspect]
     Indication: DRUG USE FOR UNKNOWN INDICATION
     Dosage: 500 mg (250 mg, 2 in 1 D0, Oral
     Route: 048
     Dates: start: 20051005, end: 20100318

REACTIONS (3)
  - Fall [None]
  - Drug level increased [None]
  - Coronary artery disease [None]
